FAERS Safety Report 5452554-4 (Version None)
Quarter: 2007Q3

REPORT INFORMATION
  Report Type: 
  Country: None (occurrence: None)
  Receive Date: 20070914
  Receipt Date: 20070910
  Transmission Date: 20080115
  Serious: Yes (Other)
  Sender: FDA-Public Use
  Company Number: JP-BAYER-200715270GDS

PATIENT
  Age: 2 Year
  Sex: Male

DRUGS (2)
  1. ASPIRIN [Suspect]
     Indication: KAWASAKI'S DISEASE
     Route: 042
  2. IMMUNE GLOBULIN INTRAVENOUS (HUMAN) [Suspect]
     Indication: KAWASAKI'S DISEASE
     Route: 042

REACTIONS (8)
  - DRUG RASH WITH EOSINOPHILIA AND SYSTEMIC SYMPTOMS [None]
  - EOSINOPHIL COUNT INCREASED [None]
  - HEPATIC FUNCTION ABNORMAL [None]
  - HUMAN HERPES VIRUS 6 SEROLOGY POSITIVE [None]
  - HYPERTHERMIA [None]
  - LYMPHADENOPATHY [None]
  - LYMPHOCYTE COUNT ABNORMAL [None]
  - RASH PAPULAR [None]
